FAERS Safety Report 15980071 (Version 1)
Quarter: 2019Q1

REPORT INFORMATION
  Report Type: Spontaneous
  Country: US (occurrence: US)
  Receive Date: 20190124
  Receipt Date: 20190124
  Transmission Date: 20190418
  Serious: No
  Sender: FDA-Public Use
  Company Number: None

PATIENT
  Age: 29 Year
  Weight: 52.16 kg

DRUGS (2)
  1. TALTZ [Suspect]
     Active Substance: IXEKIZUMAB
     Indication: PSORIASIS
     Route: 058
     Dates: start: 201812
  2. TALTZ [Suspect]
     Active Substance: IXEKIZUMAB
     Indication: GUTTATE PSORIASIS

REACTIONS (1)
  - Syncope [None]
